FAERS Safety Report 16844885 (Version 1)
Quarter: 2019Q3

REPORT INFORMATION
  Report Type: Spontaneous
  Country: US (occurrence: US)
  Receive Date: 20190924
  Receipt Date: 20190924
  Transmission Date: 20191005
  Serious: No
  Sender: FDA-Public Use
  Company Number: US-PFIZER INC-2019409595

PATIENT
  Age: 62 Year
  Sex: Male

DRUGS (2)
  1. SILDENAFIL CITRATE. [Suspect]
     Active Substance: SILDENAFIL CITRATE
     Dosage: UNK
  2. REMODULIN [Suspect]
     Active Substance: TREPROSTINIL
     Indication: PULMONARY ARTERIAL HYPERTENSION
     Dosage: UNK (13NKM, CONTINUOUS INFUSION)
     Route: 042
     Dates: start: 20180330

REACTIONS (3)
  - Vision blurred [Unknown]
  - Abdominal distension [Unknown]
  - Dyspepsia [Unknown]
